FAERS Safety Report 8177965-8 (Version None)
Quarter: 2012Q1

REPORT INFORMATION
  Report Type: 
  Country: None (occurrence: None)
  Receive Date: 20120301
  Receipt Date: 20120221
  Transmission Date: 20120608
  Serious: Yes (Hospitalization)
  Sender: FDA-Public Use
  Company Number: JP-PFIZER INC-2011303845

PATIENT
  Age: 21 Month
  Sex: Female
  Weight: 30 kg

DRUGS (2)
  1. SOLU-MEDROL [Suspect]
     Indication: NEPHROTIC SYNDROME
     Dosage: 375 MG/DAY
     Route: 041
     Dates: start: 20091125, end: 20091127
  2. CYCLOSPORINE [Interacting]
     Indication: NEPHROTIC SYNDROME
     Dosage: 60 MG/DAY
     Route: 048
     Dates: start: 20091120, end: 20091128

REACTIONS (1)
  - ALTERED STATE OF CONSCIOUSNESS [None]
